FAERS Safety Report 9128040 (Version 1)
Quarter: 2013Q1

REPORT INFORMATION
  Report Type: Spontaneous
  Country: US (occurrence: US)
  Receive Date: 20130228
  Receipt Date: 20130228
  Transmission Date: 20140127
  Serious: No
  Sender: FDA-Public Use
  Company Number: US-PFIZER INC-2013071961

PATIENT
  Age: 59 Year
  Sex: Female

DRUGS (2)
  1. NEURONTIN [Suspect]
     Indication: PAIN IN EXTREMITY
     Dosage: ONE IN THE MORNING AND TWO AT NIGHT, 2X/DAY
  2. NEURONTIN [Suspect]
     Dosage: UNK

REACTIONS (1)
  - Drug ineffective [Unknown]
